FAERS Safety Report 5937266-2 (Version None)
Quarter: 2008Q4

REPORT INFORMATION
  Report Type: 
  Country: None (occurrence: None)
  Receive Date: 20081031
  Receipt Date: 20081022
  Transmission Date: 20090506
  Serious: Yes (Other)
  Sender: FDA-Public Use
  Company Number: US-JNJFOC-20080905011

PATIENT
  Age: 40 Year
  Sex: Female
  Weight: 108.86 kg

DRUGS (2)
  1. TYLENOL ALLERGY MULTI-SYMPTOM RAPID RELEASE [Suspect]
     Indication: SEASONAL ALLERGY
     Route: 048
  2. SYNTHROID [Concomitant]
     Indication: THYROID DISORDER

REACTIONS (2)
  - DRUG INEFFECTIVE [None]
  - PRODUCT COUNTERFEIT [None]
